FAERS Safety Report 6206003-9 (Version None)
Quarter: 2009Q2

REPORT INFORMATION
  Report Type: 
  Country: None (occurrence: None)
  Receive Date: 20090528
  Receipt Date: 20070523
  Transmission Date: 20091009
  Serious: Yes (Hospitalization)
  Sender: FDA-Public Use
  Company Number: US-ASTRAZENECA-2006UW25045

PATIENT
  Age: 21047 Day
  Sex: Female
  Weight: 66.2 kg

DRUGS (11)
  1. SEROQUEL [Suspect]
     Indication: SLEEP DISORDER
     Dosage: 100 MG, 200 MG
     Route: 048
     Dates: start: 20020414, end: 20051128
  2. SEROQUEL [Suspect]
     Route: 048
     Dates: start: 20020114
  3. LITHIUM [Concomitant]
  4. ZOLOFT [Concomitant]
     Route: 048
     Dates: start: 20050112
  5. PROZAC [Concomitant]
     Dates: start: 20050112
  6. SYNTHROID [Concomitant]
     Dosage: 25 MCG - 50 MCG DAILY
     Dates: start: 20050112
  7. TRICOR [Concomitant]
     Dates: start: 20050112
  8. PLAVIX [Concomitant]
     Dates: start: 20040915
  9. PRAVACHOL [Concomitant]
     Dates: start: 20050112
  10. ASPIRIN [Concomitant]
     Dosage: 81- 325 MG DAILY
     Route: 048
     Dates: start: 20050112
  11. NOVOLIN [Concomitant]
     Dosage: 3 - 24 U BEFORE MEALS
     Dates: start: 20050112

REACTIONS (5)
  - CORONARY ARTERY DISEASE [None]
  - DIABETES MELLITUS [None]
  - HYPERGLYCAEMIA [None]
  - MYOCARDIAL INFARCTION [None]
  - STENT PLACEMENT [None]
